FAERS Safety Report 10383426 (Version 1)
Quarter: 2014Q3

REPORT INFORMATION
  Report Type: Spontaneous
  Country: US (occurrence: US)
  Receive Date: 20140814
  Receipt Date: 20140814
  Transmission Date: 20150326
  Serious: No
  Sender: FDA-Public Use
  Company Number: US-ASTRAZENECA-2014SE59563

PATIENT
  Age: 76 Year
  Sex: Male
  Weight: 106.6 kg

DRUGS (2)
  1. UNSPECIFIED MEDICATION [Concomitant]
     Active Substance: UNSPECIFIED INGREDIENT
     Indication: HYPERTENSION
  2. NEXIUM 24HR [Suspect]
     Active Substance: ESOMEPRAZOLE MAGNESIUM
     Indication: DYSPEPSIA
     Route: 048
     Dates: start: 201407

REACTIONS (2)
  - Eye pruritus [Unknown]
  - Eye discharge [Unknown]

NARRATIVE: CASE EVENT DATE: 201407
